FAERS Safety Report 5309499-X (Version None)
Quarter: 2007Q2

REPORT INFORMATION
  Report Type: 
  Country: None (occurrence: None)
  Receive Date: 20070424
  Receipt Date: 20070402
  Transmission Date: 20071010
  Serious: Yes (Hospitalization)
  Sender: FDA-Public Use
  Company Number: US200704000178

PATIENT
  Sex: Female

DRUGS (5)
  1. EVISTA [Suspect]
     Indication: OSTEOPOROSIS
     Dates: start: 20050101, end: 20050101
  2. FORTEO [Suspect]
     Indication: OSTEOPOROSIS
     Dosage: SEE IMAGE
     Dates: start: 20060101, end: 20070101
  3. FORTEO [Suspect]
     Indication: OSTEOPOROSIS
     Dosage: SEE IMAGE
     Dates: start: 20070101, end: 20070101
  4. FORTEO [Suspect]
     Indication: OSTEOPOROSIS
     Dosage: SEE IMAGE
     Dates: start: 20070101
  5. FOSAMAX [Concomitant]

REACTIONS (8)
  - FEELING ABNORMAL [None]
  - FEELING JITTERY [None]
  - HEART RATE INCREASED [None]
  - INJECTION SITE IRRITATION [None]
  - INJECTION SITE SWELLING [None]
  - PAIN IN EXTREMITY [None]
  - PHARMACEUTICAL PRODUCT COMPLAINT [None]
  - TREMOR [None]
